FAERS Safety Report 5373589-6 (Version None)
Quarter: 2007Q2

REPORT INFORMATION
  Report Type: 
  Country: None (occurrence: None)
  Receive Date: 20070628
  Receipt Date: 20070622
  Transmission Date: 20071010
  Serious: Yes (Other)
  Sender: FDA-Public Use
  Company Number: GB-AVENTIS-200715617GDDC

PATIENT

DRUGS (2)
  1. GLIBENCLAMIDE [Suspect]
     Dosage: DOSE: UNK
  2. ENALAPRIL [Suspect]
     Dosage: DOSE: UNK

REACTIONS (3)
  - DRUG INTERACTION [None]
  - HYPOGLYCAEMIA [None]
  - SYNCOPE [None]
